FAERS Safety Report 20229326 (Version 2)
Quarter: 2022Q3

REPORT INFORMATION
  Report Type: Spontaneous
  Country: US (occurrence: US)
  Receive Date: 20211225
  Receipt Date: 20220711
  Transmission Date: 20221026
  Serious: No
  Sender: FDA-Public Use
  Company Number: US-GILEAD-2021-0562272

PATIENT
  Age: 55 Year
  Sex: Female
  Weight: 79.365 kg

DRUGS (52)
  1. TRUVADA [Suspect]
     Active Substance: EMTRICITABINE\TENOFOVIR DISOPROXIL FUMARATE
     Indication: HIV infection
     Dosage: UNK
     Route: 048
     Dates: start: 2001
  2. TRUVADA [Suspect]
     Active Substance: EMTRICITABINE\TENOFOVIR DISOPROXIL FUMARATE
     Dosage: UNK
     Route: 048
     Dates: start: 200602, end: 201502
  3. VIREAD [Suspect]
     Active Substance: TENOFOVIR DISOPROXIL FUMARATE
     Indication: HIV infection
     Dosage: UNK
     Route: 048
     Dates: start: 2001
  4. VIREAD [Suspect]
     Active Substance: TENOFOVIR DISOPROXIL FUMARATE
     Dosage: UNK
     Route: 048
     Dates: start: 200310, end: 201609
  5. TRIUMEQ [Concomitant]
     Active Substance: ABACAVIR SULFATE\DOLUTEGRAVIR SODIUM\LAMIVUDINE
  6. EPIVIR [Concomitant]
     Active Substance: LAMIVUDINE
  7. KALETRA [Concomitant]
     Active Substance: LOPINAVIR\RITONAVIR
  8. TRIZIVIR [Concomitant]
     Active Substance: ABACAVIR SULFATE\LAMIVUDINE\ZIDOVUDINE
  9. ZIAGEN [Concomitant]
     Active Substance: ABACAVIR SULFATE
  10. AMLODIPINE [Concomitant]
     Active Substance: AMLODIPINE BESYLATE
  11. ACETAMINOPHEN\CODEINE PHOSPHATE [Concomitant]
     Active Substance: ACETAMINOPHEN\CODEINE PHOSPHATE
  12. ARTIFICIAL TEARS [CARMELLOSE SODIUM] [Concomitant]
  13. ASPIRIN [Concomitant]
     Active Substance: ASPIRIN
  14. BENZONATATE [Concomitant]
     Active Substance: BENZONATATE
  15. CALCIUM CARBONATE [Concomitant]
     Active Substance: CALCIUM CARBONATE
  16. CELEBREX [Concomitant]
     Active Substance: CELECOXIB
  17. CHANTIX [Concomitant]
     Active Substance: VARENICLINE TARTRATE
  18. CLONIDINE [Concomitant]
     Active Substance: CLONIDINE
  19. VITAMINS [Concomitant]
     Active Substance: VITAMINS
  20. DEPAKOTE [Concomitant]
     Active Substance: DIVALPROEX SODIUM
  21. DIPHENHYDRAMINE [Concomitant]
     Active Substance: DIPHENHYDRAMINE
  22. ABILIFY [Concomitant]
     Active Substance: ARIPIPRAZOLE
  23. FAMOTIDINE [Concomitant]
     Active Substance: FAMOTIDINE
  24. FLONASE ALLERGY RELIEF [Concomitant]
     Active Substance: FLUTICASONE PROPIONATE
  25. FLUCONAZOLE [Concomitant]
     Active Substance: FLUCONAZOLE
  26. HYDROCHLOROTHIAZIDE [Concomitant]
     Active Substance: HYDROCHLOROTHIAZIDE
  27. HYDROCORTISONE [Concomitant]
     Active Substance: HYDROCORTISONE
  28. IBUPROFEN [Concomitant]
     Active Substance: IBUPROFEN
  29. JANUVIA [Concomitant]
     Active Substance: SITAGLIPTIN PHOSPHATE
  30. LAMICTAL [Concomitant]
     Active Substance: LAMOTRIGINE
  31. LAMOTRIGINE [Concomitant]
     Active Substance: LAMOTRIGINE
  32. LANSOPRAZOLE [Concomitant]
     Active Substance: LANSOPRAZOLE
  33. LITHIUM CARBONATE [Concomitant]
     Active Substance: LITHIUM CARBONATE
  34. LONOX [Concomitant]
     Active Substance: ATROPINE SULFATE\DIPHENOXYLATE HYDROCHLORIDE
  35. LOPERAMIDE [Concomitant]
     Active Substance: LOPERAMIDE
  36. LORATADINE [Concomitant]
     Active Substance: LORATADINE
  37. HYDROCHLOROTHIAZIDE\LOSARTAN [Concomitant]
     Active Substance: HYDROCHLOROTHIAZIDE\LOSARTAN
  38. LYRICA [Concomitant]
     Active Substance: PREGABALIN
  39. MINERALS\VITAMINS [Concomitant]
     Active Substance: MINERALS\VITAMINS
  40. NASONEX [Concomitant]
     Active Substance: MOMETASONE FUROATE
  41. NEXIUM I.V. [Concomitant]
     Active Substance: ESOMEPRAZOLE SODIUM
  42. NICOTINE [Concomitant]
     Active Substance: NICOTINE
  43. NORTRIPTYLINE [Concomitant]
     Active Substance: NORTRIPTYLINE
  44. OXYBUTYNIN [Concomitant]
     Active Substance: OXYBUTYNIN
  45. POLYETHYLENE GLYCOL 3350 [Concomitant]
     Active Substance: POLYETHYLENE GLYCOL 3350
  46. PRENATAL VITAMINS [ASCORBIC ACID;BIOTIN;MINERALS NOS;NICOTINIC ACID;RE [Concomitant]
  47. PSEUDOEPHEDRINE [Concomitant]
     Active Substance: PSEUDOEPHEDRINE
  48. ROSUVASTATIN [Concomitant]
     Active Substance: ROSUVASTATIN
  49. SENNA [SENNA ALEXANDRINA LEAF] [Concomitant]
  50. VALTREX [Concomitant]
     Active Substance: VALACYCLOVIR HYDROCHLORIDE
  51. AMBIEN [Concomitant]
     Active Substance: ZOLPIDEM TARTRATE
  52. ZYPREXA [Concomitant]
     Active Substance: OLANZAPINE

REACTIONS (11)
  - Bone demineralisation [Unknown]
  - Osteopenia [Not Recovered/Not Resolved]
  - Anxiety [Not Recovered/Not Resolved]
  - Emotional distress [Not Recovered/Not Resolved]
  - Pain [Not Recovered/Not Resolved]
  - Anhedonia [Not Recovered/Not Resolved]
  - Arthralgia [Unknown]
  - Foot fracture [Not Recovered/Not Resolved]
  - Hypoaesthesia [Unknown]
  - Foot fracture [Recovered/Resolved]
  - Depression [Unknown]

NARRATIVE: CASE EVENT DATE: 20130201
